FAERS Safety Report 13463738 (Version 4)
Quarter: 2017Q3

REPORT INFORMATION
  Report Type: Report from Study
  Country: US (occurrence: US)
  Receive Date: 20170420
  Receipt Date: 20170915
  Transmission Date: 20171127
  Serious: Yes (Other)
  Sender: FDA-Public Use
  Company Number: PHEH2017US011069

PATIENT
  Age: 63 Year
  Sex: Male

DRUGS (2)
  1. COSENTYX [Suspect]
     Active Substance: SECUKINUMAB
     Indication: ANKYLOSING SPONDYLITIS
     Dosage: 2 DF (300 MG), QW
     Route: 058
     Dates: start: 20170413
  2. COSENTYX [Suspect]
     Active Substance: SECUKINUMAB
     Dosage: 2 DF (300 MG), QMO
     Route: 058

REACTIONS (3)
  - Pain [Not Recovered/Not Resolved]
  - Drug ineffective [Unknown]
  - Ankylosing spondylitis [Unknown]

NARRATIVE: CASE EVENT DATE: 20170413
